FAERS Safety Report 13727170 (Version 2)
Quarter: 2017Q3

REPORT INFORMATION
  Report Type: Spontaneous
  Country: US (occurrence: US)
  Receive Date: 20170707
  Receipt Date: 20170821
  Transmission Date: 20171127
  Serious: Yes (Hospitalization, Other)
  Sender: FDA-Public Use
  Company Number: US-PFIZER INC-2017290645

PATIENT
  Age: 66 Year
  Sex: Female
  Weight: 74.84 kg

DRUGS (4)
  1. AROMASIN [Suspect]
     Active Substance: EXEMESTANE
     Indication: BREAST CANCER
     Dosage: 25 MG, DAILY
     Route: 048
     Dates: start: 201612, end: 20170630
  2. LISINOPRIL. [Concomitant]
     Active Substance: LISINOPRIL
     Indication: HYPERTENSION
     Dosage: UNK UNK, AS NEEDED
     Route: 048
  3. ATENOLOL. [Concomitant]
     Active Substance: ATENOLOL
     Indication: HYPERTENSION
     Dosage: UNK UNK, AS NEEDED
     Route: 048
  4. ASPIRIN /00002701/ [Concomitant]
     Active Substance: ASPIRIN
     Indication: INFLAMMATION
     Dosage: ^2^, AS NEEDED
     Route: 048

REACTIONS (12)
  - Pain in extremity [Not Recovered/Not Resolved]
  - Motor dysfunction [Unknown]
  - Diabetes mellitus [Unknown]
  - Myalgia [Not Recovered/Not Resolved]
  - Decreased appetite [Unknown]
  - Tendonitis [Unknown]
  - Weight decreased [Unknown]
  - Rash [Not Recovered/Not Resolved]
  - Psoriatic arthropathy [Not Recovered/Not Resolved]
  - Muscular weakness [Unknown]
  - Infection [Not Recovered/Not Resolved]
  - Fatigue [Not Recovered/Not Resolved]
